FAERS Safety Report 9670737 (Version 1)
Quarter: 2013Q4

REPORT INFORMATION
  Report Type: Spontaneous
  Country: US (occurrence: US)
  Receive Date: 20131106
  Receipt Date: 20131106
  Transmission Date: 20140711
  Serious: No
  Sender: FDA-Public Use
  Company Number: US-ENDO PHARMACEUTICALS INC.-HYDR20120012

PATIENT
  Age: 68 Year
  Sex: Male
  Weight: 97.61 kg

DRUGS (9)
  1. HYDROCORTISONE TABLETS 20MG [Suspect]
     Indication: PITUITARY TUMOUR
     Route: 048
     Dates: start: 20120608
  2. SYNTHROID [Concomitant]
     Indication: PITUITARY TUMOUR
     Route: 065
  3. BROMOCRIPTINE [Concomitant]
     Indication: PITUITARY TUMOUR
     Route: 065
  4. TESTOSTERONE [Concomitant]
     Indication: PITUITARY TUMOUR
     Dosage: UNKNOWN
     Route: 065
  5. ATORVASTATIN [Concomitant]
     Indication: BLOOD CHOLESTEROL INCREASED
     Route: 065
  6. TEGRETOL XR [Concomitant]
     Indication: EPILEPSY
     Route: 065
  7. CLOPIDOGREL [Concomitant]
     Indication: CEREBROVASCULAR ACCIDENT
     Route: 065
  8. TRAVATAN [Concomitant]
     Indication: INTRAOCULAR PRESSURE INCREASED
     Dosage: 2 DROPS
     Route: 047
  9. CORTISONE ACETATE [Concomitant]
     Indication: PITUITARY TUMOUR
     Dosage: 75-100 MG
     Route: 065
     Dates: end: 20120607

REACTIONS (2)
  - Constipation [Recovered/Resolved]
  - Stress [Unknown]
